FAERS Safety Report 6131111-0 (Version None)
Quarter: 2009Q1

REPORT INFORMATION
  Report Type: 
  Country: None (occurrence: None)
  Receive Date: 20090323
  Receipt Date: 20090313
  Transmission Date: 20090719
  Serious: Yes (Hospitalization, Other)
  Sender: FDA-Public Use
  Company Number: UKP09000050

PATIENT
  Age: 83 Year
  Sex: Male

DRUGS (5)
  1. DIDRONEL [Suspect]
     Indication: STEROID THERAPY
     Dosage: ORAL
     Route: 048
     Dates: end: 20080801
  2. LANSOPRAZOLE [Concomitant]
  3. MORPHINE SULFATE [Concomitant]
  4. PREDNISOLONE [Concomitant]
  5. SIMVASTATIN [Concomitant]

REACTIONS (2)
  - PAIN IN EXTREMITY [None]
  - STRESS FRACTURE [None]
